FAERS Safety Report 8130363-5 (Version None)
Quarter: 2012Q1

REPORT INFORMATION
  Report Type: 
  Country: None (occurrence: None)
  Receive Date: 20120210
  Receipt Date: 20120207
  Transmission Date: 20120608
  Serious: Yes (Death)
  Sender: FDA-Public Use
  Company Number: PHHY2011CA112860

PATIENT
  Sex: Female

DRUGS (1)
  1. SANDOSTATIN LAR [Suspect]
     Indication: BILE DUCT CANCER
     Dosage: 20 MG, QMO
     Route: 030
     Dates: start: 20111122, end: 20111222

REACTIONS (5)
  - DYSPEPSIA [None]
  - FATIGUE [None]
  - DEATH [None]
  - ASTHENIA [None]
  - INSOMNIA [None]
